FAERS Safety Report 21312112 (Version 1)
Quarter: 2022Q3

REPORT INFORMATION
  Report Type: Spontaneous
  Country: US (occurrence: None)
  Receive Date: 20220909
  Receipt Date: 20220909
  Transmission Date: 20221026
  Serious: No
  Sender: FDA-Public Use
  Company Number: US-ARIS GLOBAL-202204-0685

PATIENT
  Sex: Female

DRUGS (5)
  1. OXERVATE [Suspect]
     Active Substance: CENEGERMIN-BKBJ
     Indication: Neurotrophic keratopathy
     Route: 047
     Dates: start: 20210503, end: 20210629
  2. OXERVATE [Suspect]
     Active Substance: CENEGERMIN-BKBJ
     Route: 047
     Dates: start: 20220310
  3. TYLENOL [Concomitant]
     Active Substance: ACETAMINOPHEN
  4. BETIMOL [Concomitant]
     Active Substance: TIMOLOL
  5. TIMOLOL-DORZOLAMIDE [Concomitant]
     Dosage: 2%-0.5%

REACTIONS (1)
  - Product administration error [Unknown]
